FAERS Safety Report 20468444 (Version 2)
Quarter: 2022Q1

REPORT INFORMATION
  Report Type: Spontaneous
  Country: US (occurrence: US)
  Receive Date: 20220214
  Receipt Date: 20220218
  Transmission Date: 20220423
  Serious: Yes (Other)
  Sender: FDA-Public Use
  Company Number: US-ELI_LILLY_AND_COMPANY-US202202003049

PATIENT
  Sex: Male

DRUGS (1)
  1. ZYPREXA [Suspect]
     Active Substance: OLANZAPINE
     Indication: Product used for unknown indication
     Dosage: UNK UNK, UNKNOWN
     Route: 065

REACTIONS (7)
  - Gait disturbance [Unknown]
  - Feeling abnormal [Unknown]
  - Contusion [Unknown]
  - Dysstasia [Unknown]
  - Muscular weakness [Unknown]
  - Fall [Unknown]
  - Balance disorder [Unknown]
